FAERS Safety Report 5044224-1 (Version None)
Quarter: 2006Q3

REPORT INFORMATION
  Report Type: 
  Country: None (occurrence: None)
  Receive Date: 20060706
  Receipt Date: 20060522
  Transmission Date: 20061208
  Serious: Yes (Disabling)
  Sender: FDA-Public Use
  Company Number: NO-ROCHE-453631

PATIENT
  Age: 25 Year
  Sex: Male

DRUGS (1)
  1. ROACCUTAN [Suspect]
     Indication: ACNE
     Route: 048
     Dates: start: 19841215, end: 19850415

REACTIONS (9)
  - DEPRESSION [None]
  - DISTURBANCE IN ATTENTION [None]
  - DRY EYE [None]
  - DRY MOUTH [None]
  - EPISTAXIS [None]
  - FATIGUE [None]
  - INSOMNIA [None]
  - JOINT STIFFNESS [None]
  - PSYCHOMOTOR SKILLS IMPAIRED [None]
